FAERS Safety Report 10533141 (Version 1)
Quarter: 2014Q4

REPORT INFORMATION
  Report Type: Spontaneous
  Country: US (occurrence: US)
  Receive Date: 20141022
  Receipt Date: 20141022
  Transmission Date: 20150529
  Serious: Yes (Death)
  Sender: FDA-Public Use
  Company Number: US-ROCHE-1478002

PATIENT
  Age: 6 Decade
  Sex: Male

DRUGS (1)
  1. RITUXAN [Suspect]
     Active Substance: RITUXIMAB
     Indication: GRANULOMATOSIS WITH POLYANGIITIS
     Dosage: X4 WEEKS
     Route: 065
     Dates: start: 201408, end: 201409

REACTIONS (1)
  - Subcutaneous haematoma [Fatal]

NARRATIVE: CASE EVENT DATE: 201409
